FAERS Safety Report 7531525-8 (Version None)
Quarter: 2011Q2

REPORT INFORMATION
  Report Type: 
  Country: None (occurrence: None)
  Receive Date: 20110601
  Receipt Date: 20110518
  Transmission Date: 20111010
  Serious: Yes (Other)
  Sender: FDA-Public Use
  Company Number: JP-2011-10797

PATIENT
  Age: 70 Year
  Sex: Female

DRUGS (10)
  1. REMITCH (NALFURAFINE HYDROCHLORIDE) [Concomitant]
  2. AMLODIPINE BESYLATE [Concomitant]
  3. ISOSORBIDE DINITRATE [Concomitant]
  4. CALTAN (CALCIUM CARBONATE) [Concomitant]
  5. PLETAL [Suspect]
     Dosage: 200 MG MILLIGRAM(S), BID, ORAL
     Route: 048
     Dates: end: 20100909
  6. ASPIRIN [Concomitant]
  7. BIO-THREE (CLOSTRIDIUM BUTYRICUM COMBINED DRUG) [Concomitant]
  8. PROMAC (POLAPREZINC) [Concomitant]
  9. RISUMIC (AMEZINIUM METILSULFATE) [Concomitant]
  10. ATARAX [Concomitant]

REACTIONS (2)
  - WHITE BLOOD CELL COUNT DECREASED [None]
  - GRANULOCYTE COUNT DECREASED [None]
